FAERS Safety Report 7119598-8 (Version None)
Quarter: 2010Q4

REPORT INFORMATION
  Report Type: 
  Country: None (occurrence: None)
  Receive Date: 20101115
  Receipt Date: 20101104
  Transmission Date: 20110411
  Serious: Yes (Hospitalization, Other)
  Sender: FDA-Public Use
  Company Number: JHP201000346

PATIENT
  Sex: Male

DRUGS (1)
  1. KETALAR [Suspect]
     Indication: DRUG ABUSE
     Dosage: INHALATION
     Route: 055

REACTIONS (7)
  - CONTRACTED BLADDER [None]
  - FIBROSIS [None]
  - INFLAMMATION [None]
  - RENAL FAILURE ACUTE [None]
  - RENAL PAPILLARY NECROSIS [None]
  - URETERIC STENOSIS [None]
  - URINARY TRACT INJURY [None]
